FAERS Safety Report 5422709-3 (Version None)
Quarter: 2007Q3

REPORT INFORMATION
  Report Type: 
  Country: None (occurrence: None)
  Receive Date: 20070822
  Receipt Date: 20070813
  Transmission Date: 20080115
  Serious: Yes (Hospitalization, Other)
  Sender: FDA-Public Use
  Company Number: US-PFIZER INC-2006057885

PATIENT
  Sex: Male
  Weight: 84.8 kg

DRUGS (9)
  1. CELEBREX [Suspect]
     Indication: ARTHRALGIA
     Dates: start: 20010101, end: 20050101
  2. CELEBREX [Suspect]
     Indication: ARTHRITIS
  3. CELEBREX [Suspect]
     Indication: BACK PAIN
  4. BEXTRA [Suspect]
     Dates: start: 20010101, end: 20050101
  5. VIAGRA [Concomitant]
  6. ZOCOR [Concomitant]
  7. HYZAAR [Concomitant]
  8. ASPIRIN [Concomitant]
  9. VITAMIN CAP [Concomitant]

REACTIONS (2)
  - ACUTE MYOCARDIAL INFARCTION [None]
  - LUNG DISORDER [None]
